FAERS Safety Report 12379376 (Version 2)
Quarter: 2016Q3

REPORT INFORMATION
  Report Type: Spontaneous
  Country: US (occurrence: US)
  Receive Date: 20160517
  Receipt Date: 20160901
  Transmission Date: 20161109
  Serious: No
  Sender: FDA-Public Use
  Company Number: US-RELYPSA-RLY2016000427

PATIENT
  Sex: Male

DRUGS (13)
  1. ASPIRIN                            /00002701/ [Concomitant]
     Active Substance: ASPIRIN
  2. NASONEX [Concomitant]
     Active Substance: MOMETASONE FUROATE
  3. HYDROCHLOROTHIAZIDE. [Concomitant]
     Active Substance: HYDROCHLOROTHIAZIDE
  4. AYURVEDIC PREPARATION NOS [Concomitant]
  5. ADALAT CC [Concomitant]
     Active Substance: NIFEDIPINE
  6. OSTEO BI-FLEX                      /01431201/ [Concomitant]
  7. VELTASSA [Suspect]
     Active Substance: PATIROMER
     Indication: HYPERKALAEMIA
     Dosage: 8.4 G, QD
     Route: 048
     Dates: start: 20160330
  8. LIMBREL [Concomitant]
     Active Substance: FLAVOCOXID
  9. PREDNISONE. [Concomitant]
     Active Substance: PREDNISONE
  10. LISINOPRIL. [Concomitant]
     Active Substance: LISINOPRIL
  11. LOPRESSOR HCT [Concomitant]
     Active Substance: HYDROCHLOROTHIAZIDE\METOPROLOL TARTRATE
  12. TESTOSTERONE. [Concomitant]
     Active Substance: TESTOSTERONE
  13. NORCO [Concomitant]
     Active Substance: ACETAMINOPHEN\HYDROCODONE BITARTRATE

REACTIONS (2)
  - Drug dose omission [Unknown]
  - Abdominal distension [Unknown]
